FAERS Safety Report 10007839 (Version 1)
Quarter: 2014Q1

REPORT INFORMATION
  Report Type: Spontaneous
  Country: US (occurrence: None)
  Receive Date: 20140311
  Receipt Date: 20140311
  Transmission Date: 20141002
  Serious: Yes (Other)
  Sender: FDA-Public Use
  Company Number: 2014-US-002252

PATIENT
  Age: 55 Year
  Sex: Female
  Weight: 99.8 kg

DRUGS (12)
  1. XYREM [Suspect]
     Route: 048
     Dates: start: 201209
  2. XYREM [Suspect]
     Route: 048
     Dates: start: 201209
  3. RITALIN [Concomitant]
  4. PROVIGIL (MODAFINIL) [Concomitant]
  5. FLUVOXAMINE [Concomitant]
  6. METOPROLOL- 1 A PHARMA (METOPROLOL TARTRATE) [Concomitant]
  7. ASPIRIN (ACETYLSALICYLIC ACID) [Concomitant]
  8. LYRICA (PREGABALIN) [Concomitant]
  9. FUROSEMIDE (FUROSEMIDE) [Concomitant]
  10. KLOR-CON (POTASSIUM CHLORIDE) [Concomitant]
  11. CEREFOLIN NAC (CALICUM MEFOLINATE, CYANOCOBALAMIN, PYRIDOXINE, RIBOFLAVIN) [Concomitant]
  12. TRAMADOL (TRAMADOL HYDROCHLORIDE) [Concomitant]

REACTIONS (4)
  - Brain injury [None]
  - Dizziness [None]
  - Vomiting [None]
  - Cognitive disorder [None]
